FAERS Safety Report 6974869-0 (Version None)
Quarter: 2010Q3

REPORT INFORMATION
  Report Type: 
  Country: None (occurrence: None)
  Receive Date: 20100909
  Receipt Date: 20100902
  Transmission Date: 20110219
  Serious: Yes (Hospitalization)
  Sender: FDA-Public Use
  Company Number: JP-ELI_LILLY_AND_COMPANY-JP201009000436

PATIENT
  Age: 73 Year
  Sex: Female
  Weight: 46 kg

DRUGS (16)
  1. PEMETREXED [Suspect]
     Indication: LUNG ADENOCARCINOMA STAGE IV
     Dosage: 500 MG/M2, OTHER
     Route: 042
     Dates: start: 20100126, end: 20100609
  2. CISPLATIN [Concomitant]
     Indication: LUNG ADENOCARCINOMA STAGE IV
     Dosage: 75 MG/M2, OTHER
     Route: 042
     Dates: start: 20100126, end: 20100609
  3. DECADRON [Concomitant]
     Route: 042
     Dates: start: 20100126, end: 20100611
  4. GRANISETRON HCL [Concomitant]
     Dosage: UNK, UNK
     Route: 042
     Dates: start: 20100126, end: 20100601
  5. PANVITAN [Concomitant]
     Dosage: 1 G, UNK
     Route: 048
     Dates: start: 20100118
  6. METHYCOBAL [Concomitant]
     Dosage: 1 MG, UNK
     Route: 030
     Dates: start: 20100118, end: 20100513
  7. JUZENTAIHOTO [Concomitant]
     Route: 048
  8. BASEN [Concomitant]
     Indication: DIABETES MELLITUS
     Route: 048
  9. AMARYL [Concomitant]
     Indication: DIABETES MELLITUS
     Route: 048
  10. OSTELUC [Concomitant]
     Indication: BACK PAIN
     Route: 048
  11. LIPITOR [Concomitant]
     Indication: HYPERLIPIDAEMIA
     Route: 048
  12. EURODIN [Concomitant]
     Indication: INSOMNIA
     Route: 048
  13. ALOSENN                            /00476901/ [Concomitant]
     Indication: CONSTIPATION
     Route: 048
  14. BONALON [Concomitant]
     Indication: OSTEOPOROSIS
     Route: 048
  15. MAGLAX [Concomitant]
     Indication: CONSTIPATION
     Route: 048
  16. SALMETEROL/FLUTICASONPROPIONAAT [Concomitant]
     Indication: ASTHMA
     Route: 055

REACTIONS (1)
  - PYOTHORAX [None]
